FAERS Safety Report 13519399 (Version 4)
Quarter: 2017Q3

REPORT INFORMATION
  Report Type: Spontaneous
  Country: US (occurrence: US)
  Receive Date: 20170505
  Receipt Date: 20170725
  Transmission Date: 20171127
  Serious: Yes (Hospitalization, Other)
  Sender: FDA-Public Use
  Company Number: US-ACTELION-A-NJ2017-153216

PATIENT
  Age: 61 Year
  Sex: Female

DRUGS (7)
  1. UPTRAVI [Suspect]
     Active Substance: SELEXIPAG
     Dosage: 1400 MCG, BID
     Route: 048
  2. AMBRISENTAN [Suspect]
     Active Substance: AMBRISENTAN
     Indication: PULMONARY ARTERIAL HYPERTENSION
     Dosage: 5 MG, QD
     Route: 065
     Dates: start: 20150217
  3. XARELTO [Concomitant]
     Active Substance: RIVAROXABAN
  4. TYVASO [Suspect]
     Active Substance: TREPROSTINIL
     Indication: PRODUCT USED FOR UNKNOWN INDICATION
     Route: 065
  5. UPTRAVI [Suspect]
     Active Substance: SELEXIPAG
     Indication: PULMONARY ARTERIAL HYPERTENSION
     Dosage: UNK
     Route: 048
  6. ELIQUIS [Concomitant]
     Active Substance: APIXABAN
  7. ADCIRCA [Concomitant]
     Active Substance: TADALAFIL

REACTIONS (10)
  - Cough [Unknown]
  - Migraine [Unknown]
  - Pruritus [Unknown]
  - Palpitations [Unknown]
  - Rash pruritic [Unknown]
  - Rheumatoid arthritis [Unknown]
  - Pain in jaw [Unknown]
  - Pneumonia [Unknown]
  - Arthralgia [Unknown]
  - Bronchitis [Unknown]
